FAERS Safety Report 23392564 (Version 16)
Quarter: 2025Q2

REPORT INFORMATION
  Report Type: Spontaneous
  Country: US (occurrence: US)
  Receive Date: 20240111
  Receipt Date: 20250506
  Transmission Date: 20250716
  Serious: Yes (Hospitalization, Disabling, Other)
  Sender: AMGEN
  Company Number: US-HORIZON THERAPEUTICS-HZN-2023-008921

PATIENT
  Age: 65 Year
  Sex: Female

DRUGS (55)
  1. TEPEZZA [Suspect]
     Active Substance: TEPROTUMUMAB-TRBW
     Indication: Graves^ disease
     Dosage: 1180 MILLIGRAM, Q3WK  (FIRST INFUSION)
     Route: 042
     Dates: start: 20220718
  2. TEPEZZA [Suspect]
     Active Substance: TEPROTUMUMAB-TRBW
     Indication: Endocrine ophthalmopathy
     Dosage: 2320 MILLIGRAM, Q3WK (SECOND INFUSION)
     Route: 042
     Dates: start: 20220808
  3. TEPEZZA [Suspect]
     Active Substance: TEPROTUMUMAB-TRBW
     Dosage: 2260 MILLIGRAM, Q3WK (THIRD INFUSION)
     Route: 042
     Dates: start: 20220829
  4. TEPEZZA [Suspect]
     Active Substance: TEPROTUMUMAB-TRBW
     Dosage: 2340 MILLIGRAM, Q3WK 9 (FOURTH INFUSION)
     Route: 042
     Dates: start: 20220919
  5. TEPEZZA [Suspect]
     Active Substance: TEPROTUMUMAB-TRBW
     Dosage: 2280 MILLIGRAM, Q3WK (FIFTH INFUSION)
     Route: 042
     Dates: start: 20221010
  6. TEPEZZA [Suspect]
     Active Substance: TEPROTUMUMAB-TRBW
     Dosage: 2260 MILLIGRAM, Q3WK (SIXTH INFUSION)
     Route: 042
     Dates: start: 20221031
  7. TEPEZZA [Suspect]
     Active Substance: TEPROTUMUMAB-TRBW
     Dosage: 2270 MILLIGRAM, Q3WK (SEVENTH INFUSION)
     Route: 042
     Dates: start: 20221121
  8. TEPEZZA [Suspect]
     Active Substance: TEPROTUMUMAB-TRBW
     Dosage: 2270 MILLIGRAM, Q3WK (EIGHTH INFUSION)
     Route: 042
     Dates: start: 20221212
  9. PREDNISONE [Suspect]
     Active Substance: PREDNISONE
     Indication: Vertigo
     Route: 065
  10. ALEVE [Concomitant]
     Active Substance: NAPROXEN SODIUM
     Dosage: 220 MILLIGRAM, QD
     Route: 048
     Dates: start: 20220718
  11. Cal citrate plus vitamin D [Concomitant]
     Route: 065
     Dates: start: 20220718
  12. FLUOXETINE [Concomitant]
     Active Substance: FLUOXETINE HYDROCHLORIDE
     Dosage: 40 MILLIGRAM, QD
     Route: 048
  13. FISH OIL [Concomitant]
     Active Substance: FISH OIL
     Dosage: 1400 MILLIGRAM, BID
     Route: 048
  14. VITAMINS [Concomitant]
     Active Substance: VITAMINS
     Dosage: UNK, QD, (ONE TABLET)
     Route: 048
  15. PANTOPRAZOLE [Concomitant]
     Active Substance: PANTOPRAZOLE
     Dosage: 20 MILLIGRAM, QD
     Route: 048
     Dates: start: 20220718
  16. PANTOPRAZOLE [Concomitant]
     Active Substance: PANTOPRAZOLE
     Dosage: 20 MILLIGRAM, BID
     Route: 048
     Dates: start: 20231106, end: 20240825
  17. PANTOPRAZOLE [Concomitant]
     Active Substance: PANTOPRAZOLE
     Dosage: 20 MILLIGRAM, BID
     Route: 048
     Dates: start: 20241205
  18. ROSUVASTATIN [Concomitant]
     Active Substance: ROSUVASTATIN
     Dosage: 20 MILLIGRAM, QD  (BEDTIME)
     Route: 048
  19. TYLENOL [Concomitant]
     Active Substance: ACETAMINOPHEN
     Route: 048
     Dates: start: 20220718
  20. SODIUM CHLORIDE [Concomitant]
     Active Substance: SODIUM CHLORIDE
     Route: 065
  21. INFLUENZA VIRUS VACCINE [Concomitant]
     Active Substance: INFLUENZA VIRUS VACCINE
     Route: 030
     Dates: start: 20211214
  22. INFLUENZA VIRUS VACCINE [Concomitant]
     Active Substance: INFLUENZA VIRUS VACCINE
     Route: 065
     Dates: start: 20221101
  23. INFLUENZA VIRUS VACCINE [Concomitant]
     Active Substance: INFLUENZA VIRUS VACCINE
     Route: 030
     Dates: start: 20231110
  24. ACETAMINOPHEN [Concomitant]
     Active Substance: ACETAMINOPHEN
     Dosage: 325 MILLIGRAM, QD
     Route: 048
  25. TYLENOL PM [Concomitant]
     Active Substance: ACETAMINOPHEN\DIPHENHYDRAMINE
     Route: 048
     Dates: start: 20220802, end: 20240721
  26. CALCIUM\VITAMIN D [Concomitant]
     Active Substance: CALCIUM\VITAMIN D
     Dosage: UNK, BID (TWO TABLETS)
     Route: 048
  27. ERTAPENEM [Concomitant]
     Active Substance: ERTAPENEM
     Route: 065
  28. FLONASE [Concomitant]
     Active Substance: FLUTICASONE PROPIONATE
     Dosage: UNK, BID (50 MCG/INH NASAL SPRAY)
  29. MECLIZINE [Concomitant]
     Active Substance: MECLIZINE HYDROCHLORIDE
     Dosage: 12.5 MILLIGRAM, TID
     Route: 048
     Dates: start: 20240321, end: 20240721
  30. VANCOMYCIN [Concomitant]
     Active Substance: VANCOMYCIN
     Dosage: 125 MILLIGRAM, Q6H
     Route: 048
  31. OZEMPIC [Concomitant]
     Active Substance: SEMAGLUTIDE
     Indication: Weight decreased
     Dosage: UNK UNK, QWK
     Route: 058
  32. IBUPROFEN [Concomitant]
     Active Substance: IBUPROFEN
     Dosage: 600 MILLIGRAM, QID
     Route: 048
  33. PREDNISOLONE [Concomitant]
     Active Substance: PREDNISOLONE
     Route: 065
  34. SYSTANE (HYPROMELLOSE 2910 (4000 MPA.S)) [Concomitant]
     Active Substance: HYPROMELLOSE 2910 (4000 MPA.S)
     Route: 047
  35. CITALOPRAM [Concomitant]
     Active Substance: CITALOPRAM
     Dosage: 20 MILLIGRAM, QD
     Route: 048
  36. OMEPRAZOLE [Concomitant]
     Active Substance: OMEPRAZOLE
     Dosage: 20 MILLIGRAM, QD
     Route: 048
  37. OMEPRAZOLE [Concomitant]
     Active Substance: OMEPRAZOLE
     Dosage: 40 MILLIGRAM, QD
     Route: 048
  38. PAXIL [Concomitant]
     Active Substance: PAROXETINE HYDROCHLORIDE
     Dosage: 40 MILLIGRAM, QD
     Route: 048
  39. PROTONIX [Concomitant]
     Active Substance: PANTOPRAZOLE SODIUM
     Dosage: 20 MILLIGRAM, BID
     Route: 048
  40. COLACE [Concomitant]
     Active Substance: DOCUSATE SODIUM
     Dosage: 100 MILLIGRAM, BID
     Route: 048
  41. ESTRACE [Concomitant]
     Active Substance: ESTRADIOL
     Dosage: 0.5 MILLIGRAM, QD
     Route: 048
  42. PAROXETINE [Concomitant]
     Active Substance: PAROXETINE
     Route: 048
  43. TAMIFLU [Concomitant]
     Active Substance: OSELTAMIVIR PHOSPHATE
     Dosage: 75 MILLIGRAM, BID
     Route: 048
  44. CRESTOR [Concomitant]
     Active Substance: ROSUVASTATIN CALCIUM
     Dosage: 20 MILLIGRAM, QD, (ONE AT BEDTIME)
     Route: 048
  45. ESTRADIOL [Concomitant]
     Active Substance: ESTRADIOL
     Dosage: 0.5 MILLIGRAM, QD
     Route: 048
  46. Artificial tears [Concomitant]
     Dosage: UNK, QD (DAILY IN EACH EYE) (4-6 TIMES DAILY)
     Route: 047
  47. REFRESH CLASSIC [Concomitant]
     Active Substance: POLYVINYL ALCOHOL\POVIDONE
     Route: 047
  48. DOCUSATE [Concomitant]
     Active Substance: DOCUSATE
     Indication: Constipation
     Dosage: 100 MILLIGRAM, BID
     Route: 048
  49. ALEVE PM [Concomitant]
     Active Substance: DIPHENHYDRAMINE HYDROCHLORIDE\NAPROXEN SODIUM
     Dosage: UNK, QHS (2 TABLETS)
     Route: 048
  50. PROZAC [Concomitant]
     Active Substance: FLUOXETINE HYDROCHLORIDE
     Indication: Major depression
  51. POTASSIUM CHLORIDE [Concomitant]
     Active Substance: POTASSIUM CHLORIDE
     Dosage: 600 MILLIGRAM, QD ( 8 MEQ )
     Route: 048
     Dates: start: 20240322, end: 20240721
  52. POTASSIUM CHLORIDE [Concomitant]
     Active Substance: POTASSIUM CHLORIDE
     Dosage: 600 MILLIGRAM, BID ( 8 MEQ )
     Route: 048
     Dates: start: 20240905, end: 20240912
  53. POTASSIUM CHLORIDE [Concomitant]
     Active Substance: POTASSIUM CHLORIDE
     Dosage: 600 MILLIGRAM, QD  16 MEQ ( 2 TAB )
     Route: 048
     Dates: start: 20240912, end: 20241218
  54. WEGOVY [Concomitant]
     Active Substance: SEMAGLUTIDE
     Dosage: 0.25 MILLIGRAM, QWK
     Route: 058
  55. VISTARIL [Concomitant]
     Active Substance: HYDROXYZINE PAMOATE
     Dosage: 25 MILLIGRAM, QHS
     Route: 048
     Dates: start: 20200727, end: 20201025

REACTIONS (93)
  - Pharyngeal abscess [Unknown]
  - Physical disability [Unknown]
  - Disability [Unknown]
  - Endocrine ophthalmopathy [Recovering/Resolving]
  - Deafness permanent [Not Recovered/Not Resolved]
  - Diabetes mellitus [Unknown]
  - Peptic ulcer [Unknown]
  - Colon cancer [Unknown]
  - Hypothyroidism [Unknown]
  - Hypothermia [Unknown]
  - Rib fracture [Unknown]
  - Quality of life decreased [Unknown]
  - Anxiety [Unknown]
  - Pain [Unknown]
  - Economic problem [Unknown]
  - Injury [Unknown]
  - Emotional distress [Unknown]
  - Discomfort [Unknown]
  - Sleep apnoea syndrome [Unknown]
  - Sinus disorder [Unknown]
  - Vertigo [Recovered/Resolved]
  - Viral upper respiratory tract infection [Recovered/Resolved]
  - Vomiting [Recovered/Resolved]
  - Dizziness [Unknown]
  - Paraesthesia [Unknown]
  - Oedema peripheral [Unknown]
  - Hypotension [Unknown]
  - Arthritis [Unknown]
  - Heterophoria [Unknown]
  - Pharyngo-oesophageal diverticulum [Unknown]
  - Breast cyst [Unknown]
  - Hyperhidrosis [Unknown]
  - Off label use [Unknown]
  - Faeces hard [Unknown]
  - Constipation [Unknown]
  - Somnolence [Unknown]
  - Haemorrhoids [Unknown]
  - Papule [Unknown]
  - Skin lesion [Unknown]
  - Body tinea [Unknown]
  - Acrochordon [Unknown]
  - Macule [Unknown]
  - Pigmentation disorder [Unknown]
  - Arthralgia [Unknown]
  - Cough [Recovered/Resolved]
  - Oedema peripheral [Recovering/Resolving]
  - Nasal congestion [Unknown]
  - Influenza [Unknown]
  - Weight increased [Unknown]
  - Neck pain [Unknown]
  - Pain in extremity [Unknown]
  - Insomnia [Unknown]
  - Conjunctivitis bacterial [Unknown]
  - Sinusitis [Unknown]
  - Blood triglycerides increased [Unknown]
  - Very low density lipoprotein increased [Unknown]
  - Blood bilirubin increased [Unknown]
  - Blood alkaline phosphatase decreased [Unknown]
  - Blood cholesterol increased [Unknown]
  - Low density lipoprotein increased [Unknown]
  - Glomerular filtration rate decreased [Unknown]
  - Mean platelet volume increased [Unknown]
  - Blood calcium decreased [Unknown]
  - Lymphocyte count decreased [Unknown]
  - Blood potassium decreased [Unknown]
  - Blood albumin increased [Unknown]
  - Blood thyroid stimulating hormone increased [Unknown]
  - Anti-thyroid antibody increased [Unknown]
  - Anti-thyroid antibody increased [Unknown]
  - Menopausal symptoms [Unknown]
  - Hypertension [Unknown]
  - Blood creatinine increased [Unknown]
  - Ageusia [Unknown]
  - Vision blurred [Unknown]
  - Abnormal sensation in eye [Unknown]
  - Eye irritation [Unknown]
  - Lacrimation increased [Unknown]
  - Eyelid retraction [Unknown]
  - Ear discomfort [Unknown]
  - Weight decreased [Unknown]
  - Tinnitus [Not Recovered/Not Resolved]
  - Muscle spasms [Recovering/Resolving]
  - Alopecia [Unknown]
  - Blood glucose increased [Unknown]
  - Headache [Unknown]
  - Diarrhoea [Unknown]
  - Nausea [Recovered/Resolved]
  - Fatigue [Unknown]
  - Nail disorder [Unknown]
  - Blood chloride decreased [Unknown]
  - Carbon dioxide increased [Unknown]
  - Blood magnesium decreased [Unknown]
  - Blood urea nitrogen/creatinine ratio decreased [Unknown]

NARRATIVE: CASE EVENT DATE: 20130128
